FAERS Safety Report 9359634 (Version 1)
Quarter: 2013Q2

REPORT INFORMATION
  Report Type: Report from Study
  Country: DE (occurrence: DE)
  Receive Date: 20130620
  Receipt Date: 20130620
  Transmission Date: 20140414
  Serious: Yes (Other)
  Sender: FDA-Public Use
  Company Number: PHHY2013DE057330

PATIENT
  Age: 54 Year
  Sex: Male

DRUGS (12)
  1. NO TREATMENT RECEIVED [Suspect]
  2. FORADIL P [Suspect]
     Indication: CHRONIC OBSTRUCTIVE PULMONARY DISEASE
     Dosage: 12 UG, UNK
     Dates: start: 20130501, end: 20130514
  3. ASS AL [Concomitant]
  4. CARVEDILOL AL [Concomitant]
     Dosage: 3.125 MG, UNK
  5. CARVEDILOL AL [Concomitant]
     Dosage: 6.25 MG, UNK
  6. CARVEDILOL AL [Concomitant]
     Dosage: 12.5 MG, UNK
  7. CARVEDILOL AL [Concomitant]
     Dosage: 25 MG, UNK
  8. RAMIPRIL AL [Concomitant]
     Dosage: 2.5 MG, UNK
  9. RAMIPRIL AL [Concomitant]
     Dosage: 5 MG, UNK
  10. RAMIPRIL AL [Concomitant]
     Dosage: 10 MG, UNK
  11. SALBU EASYHALER [Concomitant]
     Dosage: 0.1 MG, UNK
  12. SALBU EASYHALER [Concomitant]
     Dosage: 0.2 MG, UNK

REACTIONS (2)
  - Hypertensive crisis [Recovered/Resolved]
  - Dizziness [Recovered/Resolved]
